FAERS Safety Report 4594070-8 (Version None)
Quarter: 2005Q1

REPORT INFORMATION
  Report Type: 
  Country: None (occurrence: None)
  Receive Date: 20050222
  Receipt Date: 20050209
  Transmission Date: 20050727
  Serious: Yes (Hospitalization)
  Sender: FDA-Public Use
  Company Number: 167-20785-05020204

PATIENT
  Age: 55 Year
  Sex: Male

DRUGS (18)
  1. THALIDOMIDE - PHARMION (THALIDOMIDE) (50 MILLIGRAM, CAPSULES) [Suspect]
     Indication: NON-SMALL CELL LUNG CANCER
     Dosage: SEE IMAGE
     Route: 048
     Dates: start: 20041216, end: 20050201
  2. THALIDOMIDE - PHARMION (THALIDOMIDE) (50 MILLIGRAM, CAPSULES) [Suspect]
     Indication: NON-SMALL CELL LUNG CANCER
     Dosage: SEE IMAGE
     Route: 048
     Dates: start: 20050202
  3. GEMCITABINE (GEMCITABINE) [Suspect]
     Indication: NON-SMALL CELL LUNG CANCER
     Dosage: 2622 MG, DAILY, INTRAVENOUS
     Route: 042
     Dates: start: 20050120, end: 20050120
  4. GEMCITABINE (GEMCITABINE) [Suspect]
     Indication: NON-SMALL CELL LUNG CANCER
     Dosage: 2622 MG, DAILY, INTRAVENOUS
     Route: 042
     Dates: start: 20050127, end: 20050127
  5. CARBOPLATIN [Suspect]
     Indication: NON-SMALL CELL LUNG CANCER
     Dosage: 490 MG, DAILY, INTRAVENOUS
     Route: 042
     Dates: start: 20050120, end: 20050120
  6. ATENOLOL [Concomitant]
  7. ASPIRIN [Concomitant]
  8. PERINDOPRIL (PERINDOPRIL) [Concomitant]
  9. SALBUTAMOL(SALBUTAMOL) [Concomitant]
  10. ATROVENT [Concomitant]
  11. CO-DANTHRAMER(DORBANEX) [Concomitant]
  12. DOMPERIDONE(DOMPERIDONE) [Concomitant]
  13. TRAMADOL HCL [Concomitant]
  14. ORAMORPH SR [Concomitant]
  15. DEXAMETHASONE [Concomitant]
  16. GRANISETRON (GRANISETRON) [Concomitant]
  17. METOCLOPRAMIDE [Concomitant]
  18. DALTEPARIN(HEPARIN-FRACTION, SODIUM SALT) [Concomitant]

REACTIONS (13)
  - BLOOD CREATININE INCREASED [None]
  - BLOOD SODIUM DECREASED [None]
  - BLOOD UREA INCREASED [None]
  - EMPHYSEMA [None]
  - HAEMOGLOBIN DECREASED [None]
  - INFECTION [None]
  - LETHARGY [None]
  - LUNG CONSOLIDATION [None]
  - NEUTROPHIL COUNT DECREASED [None]
  - PLATELET COUNT DECREASED [None]
  - PLEURAL EFFUSION [None]
  - PNEUMOTHORAX [None]
  - PRODUCTIVE COUGH [None]
